FAERS Safety Report 19958120 (Version 1)
Quarter: 2021Q4

REPORT INFORMATION
  Report Type: Spontaneous
  Country: JP (occurrence: JP)
  Receive Date: 20211015
  Receipt Date: 20211015
  Transmission Date: 20220303
  Serious: Yes (Other)
  Sender: FDA-Public Use
  Company Number: JP-ASTELLAS-2021JP019530

PATIENT
  Age: 68 Year
  Sex: Female

DRUGS (3)
  1. PROGRAF [Suspect]
     Active Substance: TACROLIMUS
     Indication: Rheumatoid arthritis
     Route: 048
     Dates: start: 202104
  2. PROGRAF [Suspect]
     Active Substance: TACROLIMUS
     Dosage: 3 MG/DAY, UNKNOWN FREQ.
     Route: 048
     Dates: start: 202106, end: 202109
  3. PROGRAF [Suspect]
     Active Substance: TACROLIMUS
     Dosage: 2.5 MG/DAY, UNKNOWN FREQ.
     Route: 048

REACTIONS (4)
  - Rheumatoid arthritis [Unknown]
  - Renal impairment [Unknown]
  - Laboratory test abnormal [Unknown]
  - Prescribed underdose [Unknown]
